FAERS Safety Report 4655544-4 (Version None)
Quarter: 2005Q2

REPORT INFORMATION
  Report Type: 
  Country: None (occurrence: None)
  Receive Date: 20050505
  Receipt Date: 20050422
  Transmission Date: 20051028
  Serious: Yes (Other)
  Sender: FDA-Public Use
  Company Number: 2005064296

PATIENT
  Age: 60 Year
  Sex: Male
  Weight: 97.5234 kg

DRUGS (1)
  1. BEXTRA [Suspect]
     Indication: INTERVERTEBRAL DISC PROTRUSION
     Dosage: 20 MG (20 MG, 1 IN 1 D), ORAL
     Route: 048
     Dates: start: 20040101, end: 20050412

REACTIONS (6)
  - DRUG EFFECT DECREASED [None]
  - DRY EYE [None]
  - EYE PAIN [None]
  - PAIN OF SKIN [None]
  - PALPITATIONS [None]
  - PRECANCEROUS SKIN LESION [None]
